FAERS Safety Report 4584821-0 (Version None)
Quarter: 2005Q1

REPORT INFORMATION
  Report Type: 
  Country: None (occurrence: None)
  Receive Date: 20050214
  Receipt Date: 20050131
  Transmission Date: 20050727
  Serious: Yes (Disabling)
  Sender: FDA-Public Use
  Company Number: 2005023528

PATIENT
  Age: 61 Year
  Sex: Female
  Weight: 58.9676 kg

DRUGS (3)
  1. GLUCOTROL [Suspect]
     Indication: DIABETES MELLITUS
     Dosage: 5 MG (5 MG, 1 IN 1 D), ORAL
     Route: 048
     Dates: start: 20030220, end: 20041101
  2. NEURONTIN [Suspect]
     Indication: BACK PAIN
     Dosage: 100 MG (100 MG, 1 IN 1 D), ORAL
     Route: 048
  3. NEURONTIN [Suspect]
     Indication: PAIN
     Dosage: 100 MG (100 MG, 1 IN 1 D), ORAL
     Route: 048

REACTIONS (7)
  - BACK PAIN [None]
  - BLOOD GLUCOSE INCREASED [None]
  - COUGH [None]
  - MUSCLE SPASMS [None]
  - PAIN [None]
  - TREATMENT NONCOMPLIANCE [None]
  - VIRAL UPPER RESPIRATORY TRACT INFECTION [None]
